FAERS Safety Report 24566942 (Version 1)
Quarter: 2024Q4

REPORT INFORMATION
  Report Type: Spontaneous
  Country: EG (occurrence: EG)
  Receive Date: 20241030
  Receipt Date: 20241030
  Transmission Date: 20250115
  Serious: Yes (Hospitalization)
  Sender: MERCK KGAA
  Company Number: EG-Merck Healthcare KGaA-2024056373

PATIENT
  Age: 24 Year
  Sex: Female
  Weight: 60 kg

DRUGS (1)
  1. EUTHYROX [Suspect]
     Active Substance: LEVOTHYROXINE SODIUM
     Indication: Post procedural hypothyroidism
     Route: 048
     Dates: start: 20240501

REACTIONS (2)
  - Dizziness [Recovered/Resolved]
  - Heart rate increased [Recovered/Resolved]
